FAERS Safety Report 8935358 (Version 1)
Quarter: 2012Q4

REPORT INFORMATION
  Report Type: Spontaneous
  Country: US (occurrence: None)
  Receive Date: 20121127
  Receipt Date: 20121127
  Transmission Date: 20130627
  Serious: No
  Sender: FDA-Public Use
  Company Number: None

PATIENT
  Sex: Female

DRUGS (1)
  1. TYKERB [Suspect]
     Dosage: 12500MG QD PO
     Route: 048
     Dates: start: 201106, end: 201211

REACTIONS (3)
  - Drug ineffective [None]
  - Cardiac disorder [None]
  - Ejection fraction decreased [None]
